FAERS Safety Report 7937442-3 (Version None)
Quarter: 2011Q4

REPORT INFORMATION
  Report Type: 
  Country: None (occurrence: None)
  Receive Date: 20111123
  Receipt Date: 20111116
  Transmission Date: 20120403
  Serious: Yes (Other)
  Sender: FDA-Public Use
  Company Number: US-JNJFOC-20111107362

PATIENT
  Sex: Male
  Weight: 113.4 kg

DRUGS (3)
  1. REMICADE [Suspect]
     Route: 042
     Dates: start: 20111101
  2. REMICADE [Suspect]
     Indication: RHEUMATOID ARTHRITIS
     Route: 042
     Dates: end: 20111001
  3. METHOTREXATE [Concomitant]
     Indication: RHEUMATOID ARTHRITIS
     Dosage: FREQUENCY: WEEKLY
     Route: 048

REACTIONS (7)
  - HYPERTENSION [None]
  - HEPATIC ENZYME INCREASED [None]
  - RED BLOOD CELL SEDIMENTATION RATE INCREASED [None]
  - INFUSION RELATED REACTION [None]
  - PNEUMONIA [None]
  - DYSPHONIA [None]
  - ANAPHYLACTOID REACTION [None]
